FAERS Safety Report 4435773-5 (Version None)
Quarter: 2004Q3

REPORT INFORMATION
  Report Type: 
  Country: None (occurrence: None)
  Receive Date: 20040826
  Receipt Date: 20040811
  Transmission Date: 20050211
  Serious: Yes (Hospitalization)
  Sender: FDA-Public Use
  Company Number: F01200402424

PATIENT
  Age: 68 Year
  Sex: Male
  Weight: 72.6 kg

DRUGS (17)
  1. OXALIPLATIN - SOLUTION - 130 MG/M2 [Suspect]
     Indication: NON-SMALL CELL LUNG CANCER
     Dosage: 130 MG/M2 Q3W - INTRAVENOUS NOS
     Route: 042
     Dates: start: 20040728, end: 20040728
  2. GEMCITABINE - SOLUTION - 1000 MG/M2 [Suspect]
     Dosage: 1000 MG/M2 Q3W - INTRAVENOUS NOS
     Route: 042
     Dates: start: 20040804, end: 20040804
  3. PROCHLORPERAZINE EDISYLATE [Concomitant]
  4. ONDANSETRON HCL [Concomitant]
  5. LIDOCAINE, PRILOCAINE [Concomitant]
  6. CALCIUM CARBONATE [Concomitant]
  7. WARFARIN SODIUM [Concomitant]
  8. DILTIAZEM HYDROCHLORIDE [Concomitant]
  9. SIMVASTATIN [Concomitant]
  10. ACETYLSALICYLIC ACID [Concomitant]
  11. ASCORBIC ACID,CALCIUM,MINERALS NOS,RETINOL,TOCOPHERYL ACETATE,VITAMIN [Concomitant]
  12. NICOTINAMIDE,PYRIDOXINE HYDROCHLORIDE,RIBOFLAVIN,THIAMINE HYDROCHLORID [Concomitant]
  13. ZOLPIDEM TARTRATE [Concomitant]
  14. DIAZEPAM [Concomitant]
  15. BENZONATATE [Concomitant]
  16. HYDROCODONE BITARTRATE [Concomitant]
  17. CODEINE [Concomitant]

REACTIONS (16)
  - ANOREXIA [None]
  - ASCITES [None]
  - BLOOD CREATININE INCREASED [None]
  - BLOOD PRESSURE DECREASED [None]
  - CARDIAC FAILURE CONGESTIVE [None]
  - CHOLECYSTITIS [None]
  - CHOLELITHIASIS [None]
  - GENERALISED OEDEMA [None]
  - HYPERBILIRUBINAEMIA [None]
  - HYPERKALAEMIA [None]
  - HYPOALBUMINAEMIA [None]
  - HYPONATRAEMIA [None]
  - NAUSEA [None]
  - PORTAL VEIN THROMBOSIS [None]
  - THROMBOCYTOPENIA [None]
  - URINE OUTPUT DECREASED [None]
